FAERS Safety Report 8740363 (Version 3)
Quarter: 2013Q1

REPORT INFORMATION
  Report Type: Spontaneous
  Country: US (occurrence: US)
  Receive Date: 20120823
  Receipt Date: 20130218
  Transmission Date: 20140127
  Serious: No
  Sender: FDA-Public Use
  Company Number: US-009507513-1208USA004681

PATIENT
  Age: 26 Year
  Sex: Female
  Weight: 64.85 kg

DRUGS (3)
  1. NEXPLANON [Suspect]
     Indication: CONTRACEPTION
     Dosage: UNK
     Route: 058
     Dates: start: 20120808, end: 20120808
  2. NEXPLANON [Suspect]
     Dosage: UNK
     Route: 059
     Dates: start: 20120829
  3. VITAMINS (UNSPECIFIED) [Concomitant]
     Dosage: 1 TABLET, QD
     Route: 048

REACTIONS (3)
  - Injection site haemorrhage [Recovered/Resolved]
  - Device difficult to use [Unknown]
  - Breast feeding [Unknown]
